FAERS Safety Report 8088436-1 (Version None)
Quarter: 2012Q1

REPORT INFORMATION
  Report Type: 
  Country: None (occurrence: None)
  Receive Date: 20120128
  Receipt Date: 20110601
  Transmission Date: 20120608
  Serious: No
  Sender: FDA-Public Use
  Company Number: US-ABBOTT-11P-163-0729637-00

PATIENT
  Age: 52 Year
  Sex: Female

DRUGS (4)
  1. BLOOD PRESSURE MEDICATION [Concomitant]
     Indication: PRODUCT USED FOR UNKNOWN INDICATION
  2. ACYCLOVIR [Concomitant]
     Indication: ORAL HERPES
  3. HUMIRA [Suspect]
     Indication: ANKYLOSING SPONDYLITIS
     Dates: start: 20110519
  4. ARMODAFINIL [Concomitant]
     Indication: FUNGAL INFECTION

REACTIONS (3)
  - HOT FLUSH [None]
  - PRURITUS GENERALISED [None]
  - URTICARIA [None]
